FAERS Safety Report 25260092 (Version 2)
Quarter: 2025Q4

REPORT INFORMATION
  Report Type: Report from Study
  Country: CN (occurrence: CN)
  Receive Date: 20250501
  Receipt Date: 20251230
  Transmission Date: 20260118
  Serious: Yes (Other)
  Sender: ABBVIE
  Company Number: CN-ABBVIE-6253157

PATIENT
  Age: 64 Year
  Sex: Female
  Weight: 40 kg

DRUGS (17)
  1. OZURDEX [Suspect]
     Active Substance: DEXAMETHASONE
     Indication: Diabetic retinal oedema
     Dosage: TIME INTERVAL: AS NECESSARY: 700 MICROGRAM
     Route: 050
     Dates: start: 20250120, end: 20250120
  2. PROPARACAINE HYDROCHLORIDE [Concomitant]
     Active Substance: PROPARACAINE HYDROCHLORIDE
     Indication: Induction of anaesthesia
     Dosage: 2-3 DROPS, ROA: OPHTHALMIC
     Route: 065
     Dates: start: 20250124, end: 20250124
  3. PROPARACAINE HYDROCHLORIDE [Concomitant]
     Active Substance: PROPARACAINE HYDROCHLORIDE
     Indication: Induction of anaesthesia
     Dosage: 2-3 DROPS, ROA: OPHTHALMIC
     Route: 065
     Dates: start: 20250120, end: 20250120
  4. LEVOFLOXACIN HYDROCHLORIDE [Concomitant]
     Active Substance: LEVOFLOXACIN HYDROCHLORIDE
     Indication: Prophylaxis
     Dosage: TIME INTERVAL: 0.33333333 DAYS: ROA: OPHTHALMIC
     Route: 065
     Dates: start: 20250125, end: 20250125
  5. LEVOFLOXACIN HYDROCHLORIDE [Concomitant]
     Active Substance: LEVOFLOXACIN HYDROCHLORIDE
     Indication: Prophylaxis
     Dosage: TIME INTERVAL: 0.16666667 DAYS: ROA: OPHTHALMIC
     Route: 065
     Dates: start: 20250124, end: 20250124
  6. LEVOFLOXACIN HYDROCHLORIDE [Concomitant]
     Active Substance: LEVOFLOXACIN HYDROCHLORIDE
     Indication: Prophylaxis
     Dosage: TIME INTERVAL: 0.33333333 DAYS: ROA: OPHTHALMIC
     Route: 065
     Dates: start: 20250121, end: 20250123
  7. LEVOFLOXACIN HYDROCHLORIDE [Concomitant]
     Active Substance: LEVOFLOXACIN HYDROCHLORIDE
     Indication: Prophylaxis
     Dosage: TIME INTERVAL: 0.16666667 DAYS: ROA: OPHTHALMIC
     Route: 065
     Dates: start: 20250119, end: 20250119
  8. INSULIN ASPART [Concomitant]
     Active Substance: INSULIN ASPART
     Indication: Type 2 diabetes mellitus
     Dosage: 6 IU (INTERNATIONAL UNIT)
     Route: 058
     Dates: start: 2018
  9. INSULIN ASPART [Concomitant]
     Active Substance: INSULIN ASPART
     Indication: Type 2 diabetes mellitus
     Dosage: 4 IU (INTERNATIONAL UNIT)
     Route: 058
     Dates: start: 2018
  10. INSULIN ASPART [Concomitant]
     Active Substance: INSULIN ASPART
     Indication: Type 2 diabetes mellitus
     Dosage: 6 IU (INTERNATIONAL UNIT)
     Route: 058
     Dates: start: 2022
  11. SACUBITRIL\VALSARTAN [Concomitant]
     Active Substance: SACUBITRIL\VALSARTAN
     Indication: Hypertension
     Route: 048
     Dates: start: 2024
  12. CARVEDILOL [Concomitant]
     Active Substance: CARVEDILOL
     Indication: Hypertension
     Dosage: 12.5 MILLIGRAM
     Route: 048
     Dates: start: 202401
  13. FARICIMAB [Concomitant]
     Active Substance: FARICIMAB
     Indication: Diabetic retinal oedema
     Dosage: 0.05 MILLILITER
     Route: 031
     Dates: start: 20250124, end: 20250124
  14. NIFEDIPINE [Concomitant]
     Active Substance: NIFEDIPINE
     Indication: Hypertension
     Dosage: DOSE FORM- SUSTAINED RELEASE TABLETS
     Route: 048
     Dates: start: 2022
  15. NIFEDIPINE [Concomitant]
     Active Substance: NIFEDIPINE
     Indication: Hypertension
     Dosage: DOSE FORM- SUSTAIN RELEASE TABLET
     Route: 048
     Dates: start: 2019
  16. TOBRAMYCIN AND DEXAMETHASONE [Concomitant]
     Active Substance: DEXAMETHASONE\TOBRAMYCIN
     Indication: Prophylaxis
     Dosage: APPLY AN APPROPRIATE AMOUNT TO THE LEFT EYE, ROA: OPHTHALMIC
     Route: 065
     Dates: start: 20250120, end: 20250120
  17. TOBRAMYCIN AND DEXAMETHASONE [Concomitant]
     Active Substance: DEXAMETHASONE\TOBRAMYCIN
     Indication: Prophylaxis
     Dosage: APPLY AN APPROPRIATE AMOUNT TO THE RIGHT EYE, ROA: OPHTHALMIC
     Route: 065
     Dates: start: 20250124, end: 20250124

REACTIONS (1)
  - Posterior capsule opacification [Not Recovered/Not Resolved]

NARRATIVE: CASE EVENT DATE: 20250403
